FAERS Safety Report 13240760 (Version 1)
Quarter: 2017Q1

REPORT INFORMATION
  Report Type: Spontaneous
  Country: US (occurrence: US)
  Receive Date: 20170216
  Receipt Date: 20170216
  Transmission Date: 20170428
  Serious: No
  Sender: FDA-Public Use
  Company Number: US-RELYPSA-RLY2016004222

PATIENT
  Sex: Female

DRUGS (12)
  1. VELTASSA [Suspect]
     Active Substance: PATIROMER
     Indication: HYPERKALAEMIA
     Dosage: UNKNOWN
     Route: 065
  2. LORATADINE. [Concomitant]
     Active Substance: LORATADINE
  3. FUROSEMIDE. [Concomitant]
     Active Substance: FUROSEMIDE
  4. TERAZOSIN HCL [Concomitant]
     Active Substance: TERAZOSIN HYDROCHLORIDE
  5. MIRALAX [Concomitant]
     Active Substance: POLYETHYLENE GLYCOL 3350
  6. GLIMEPIRIDE. [Concomitant]
     Active Substance: GLIMEPIRIDE
  7. TYLENOL [Concomitant]
     Active Substance: ACETAMINOPHEN
  8. GLYBURIDE. [Concomitant]
     Active Substance: GLYBURIDE
  9. FERROUS SULFATE. [Concomitant]
     Active Substance: FERROUS SULFATE
  10. NIFEDIPINE. [Concomitant]
     Active Substance: NIFEDIPINE
  11. SODIUM BICARBONATE. [Concomitant]
     Active Substance: SODIUM BICARBONATE
  12. LISINOPRIL AND HYDROCHLOROTHIAZIDE [Concomitant]
     Active Substance: HYDROCHLOROTHIAZIDE\LISINOPRIL

REACTIONS (1)
  - Adverse event [Unknown]
